FAERS Safety Report 9651420 (Version 3)
Quarter: 2013Q4

REPORT INFORMATION
  Report Type: Spontaneous
  Country: CZ (occurrence: CZ)
  Receive Date: 20131029
  Receipt Date: 20131226
  Transmission Date: 20140711
  Serious: Yes (Other)
  Sender: FDA-Public Use
  Company Number: CZ-VERTEX PHARMACEUTICALS INC-2013-010681

PATIENT
  Sex: Female

DRUGS (3)
  1. INCIVO [Suspect]
     Indication: CHRONIC HEPATITIS C
     Dosage: UNK, QD
     Route: 048
     Dates: start: 201309, end: 20131022
  2. RIBAVIRIN [Suspect]
     Indication: CHRONIC HEPATITIS C
     Dosage: DOSAGE FORM: UNKNOWN
     Route: 048
     Dates: end: 20131022
  3. PEGASYS [Suspect]
     Indication: CHRONIC HEPATITIS C
     Dosage: DOSAGE FORM: UNKNOWN
     Route: 065
     Dates: end: 20131022

REACTIONS (5)
  - Swelling face [Not Recovered/Not Resolved]
  - Lymphadenopathy [Unknown]
  - Stomatitis [Unknown]
  - Candida infection [Unknown]
  - Viral load increased [Unknown]
